FAERS Safety Report 9537731 (Version 1)
Quarter: 2013Q3

REPORT INFORMATION
  Report Type: Spontaneous
  Country: US (occurrence: US)
  Receive Date: 20130919
  Receipt Date: 20130919
  Transmission Date: 20140515
  Serious: Yes (Other)
  Sender: FDA-Public Use
  Company Number: CHPA2013US013277

PATIENT
  Age: 72 Year
  Sex: Male

DRUGS (2)
  1. ASCRIPTIN BUFFERED ARTHRITISPAIN CAPLETS [Suspect]
     Indication: NECK PAIN
     Dosage: 2 DF, QD
     Route: 048
     Dates: start: 2008, end: 2010
  2. ASCRIPTIN BUFFERED ARTHRITISPAIN CAPLETS [Suspect]
     Indication: SPINAL OSTEOARTHRITIS
     Dosage: 2 DF, PRN
     Route: 048
     Dates: start: 2010

REACTIONS (4)
  - Spinal fracture [Recovered/Resolved]
  - Incorrect drug administration duration [Unknown]
  - Off label use [Unknown]
  - Therapeutic response unexpected [Unknown]
